FAERS Safety Report 8102976-8 (Version None)
Quarter: 2012Q1

REPORT INFORMATION
  Report Type: 
  Country: None (occurrence: None)
  Receive Date: 20120201
  Receipt Date: 20120124
  Transmission Date: 20120608
  Serious: Yes (Other)
  Sender: FDA-Public Use
  Company Number: US-ASTELLAS-2012US000854

PATIENT

DRUGS (8)
  1. MYCOPHENOLATE MOFETIL (CELLCEPT) [Concomitant]
     Indication: RENAL TRANSPLANT
     Dosage: 360 MG, BID
     Route: 048
     Dates: start: 19930101
  2. SULFAMETHOXAZOLE AND TRIMETHOPRIM [Concomitant]
     Indication: ANTIBIOTIC THERAPY
     Dosage: 400/80 MG, QOD
     Route: 048
     Dates: start: 19950101
  3. NEXIUM [Concomitant]
     Indication: GASTRIC PH DECREASED
     Dosage: 80 MG, BID
     Route: 048
     Dates: start: 20000101
  4. METOPROLOL TARTRATE [Concomitant]
     Indication: HYPERTENSION
     Dosage: 50 MG, BID
     Route: 048
     Dates: start: 20000101
  5. LEXAPRO [Concomitant]
     Indication: DEPRESSION
     Dosage: 20 MG, UID/QD
     Route: 048
     Dates: start: 20000101
  6. COMBIVENT [Concomitant]
     Indication: ASTHMA
     Dosage: 2 PUFFS, UID/QD
     Route: 055
     Dates: start: 20040101
  7. PREDNISONE TAB [Concomitant]
     Indication: RENAL TRANSPLANT
     Dosage: 5 MG, QOD
     Route: 048
     Dates: start: 19930101
  8. PROGRAF [Suspect]
     Indication: RENAL TRANSPLANT
     Dosage: 2 MG, BID
     Route: 048
     Dates: start: 19970101

REACTIONS (1)
  - RENAL TRANSPLANT [None]
